FAERS Safety Report 8920271 (Version 1)
Quarter: 2012Q4

REPORT INFORMATION
  Report Type: 
  Country: US (occurrence: US)
  Receive Date: 20121121
  Receipt Date: 20121121
  Transmission Date: 20130627
  Serious: Yes (Other)
  Sender: FDA-Public Use
  Company Number: US-VERTEX PHARMACEUTICAL INC.-2012-024978

PATIENT
  Age: 60 Year
  Sex: Female

DRUGS (6)
  1. INCIVEK [Suspect]
     Indication: HEPATITIS C
     Dosage: UNK mg, qd
     Route: 048
  2. PEGINTERFERON ALFA [Suspect]
     Indication: HEPATITIS C
     Dosage: UNK, qw
     Route: 058
  3. RIBAVIRIN [Suspect]
     Indication: HEPATITIS C
     Dosage: UNK mg, qd
     Route: 048
  4. RIBAVIRIN [Suspect]
     Dosage: UNK mg, qd
     Route: 048
  5. TACROLIMUS [Concomitant]
     Indication: IMMUNOSUPPRESSION
     Dosage: 0.5 mg AM, 0.5 mg PM
  6. TACROLIMUS [Concomitant]
     Dosage: 0.5 mg, qw

REACTIONS (2)
  - Anaemia [Unknown]
  - Off label use [Unknown]
